FAERS Safety Report 9556166 (Version 1)
Quarter: 2013Q3

REPORT INFORMATION
  Report Type: Spontaneous
  Country: AU (occurrence: AU)
  Receive Date: 20130926
  Receipt Date: 20130926
  Transmission Date: 20140515
  Serious: Yes (Life-Threatening)
  Sender: FDA-Public Use
  Company Number: AU-AMGEN-AUSSP2013067047

PATIENT
  Age: 64 Year
  Sex: Male
  Weight: 112 kg

DRUGS (2)
  1. XGEVA [Suspect]
     Indication: PROSTATE CANCER
     Dosage: 120 MG, Q4WK
     Route: 065
     Dates: start: 20130515, end: 20130730
  2. XGEVA [Suspect]
     Indication: METASTASES TO BONE

REACTIONS (4)
  - Blood creatinine increased [Recovered/Resolved]
  - Paraesthesia [Recovered/Resolved]
  - Electrocardiogram QT prolonged [Recovered/Resolved]
  - Hypocalcaemia [Recovered/Resolved]
